FAERS Safety Report 6000058-2 (Version None)
Quarter: 2008Q4

REPORT INFORMATION
  Report Type: 
  Country: None (occurrence: None)
  Receive Date: 20081215
  Receipt Date: 20081205
  Transmission Date: 20090506
  Serious: Yes (Other)
  Sender: FDA-Public Use
  Company Number: B0544813A

PATIENT
  Age: 69 Year
  Sex: Female
  Weight: 64 kg

DRUGS (2)
  1. ZELITREX [Suspect]
     Dosage: 500MG PER DAY
     Route: 048
     Dates: start: 20071001
  2. TOBRADEX [Concomitant]
     Dosage: 1DROP TWICE PER DAY
     Route: 047
     Dates: start: 20071001

REACTIONS (5)
  - ERYTHEMA [None]
  - EXFOLIATIVE RASH [None]
  - PRURITUS [None]
  - PSORIASIS [None]
  - SKIN LESION [None]
